FAERS Safety Report 8502661-4 (Version None)
Quarter: 2012Q3

REPORT INFORMATION
  Report Type: 
  Country: None (occurrence: None)
  Receive Date: 20120711
  Receipt Date: 20120615
  Transmission Date: 20120928
  Serious: Yes (Other)
  Sender: FDA-Public Use
  Company Number: JP-GENZYME-RENA-1001560

PATIENT

DRUGS (1)
  1. RENAGEL [Suspect]
     Indication: PRODUCT USED FOR UNKNOWN INDICATION
     Dosage: 250 MG, UNK
     Route: 048

REACTIONS (1)
  - ALTERED STATE OF CONSCIOUSNESS [None]
